FAERS Safety Report 8287920-5 (Version None)
Quarter: 2012Q2

REPORT INFORMATION
  Report Type: 
  Country: None (occurrence: None)
  Receive Date: 20120416
  Receipt Date: 20120416
  Transmission Date: 20120825
  Serious: Yes (Other)
  Sender: FDA-Public Use
  Company Number: CN-ROCHE-1040915

PATIENT
  Age: 58 Year
  Sex: Female
  Weight: 76 kg

DRUGS (3)
  1. PEGINTERFERON ALFA-2A [Suspect]
     Indication: HEPATITIS C
     Route: 058
     Dates: start: 20110610, end: 20120101
  2. PEGINTERFERON ALFA-2A [Suspect]
     Route: 058
     Dates: start: 20120203, end: 20120323
  3. RIBAVIRIN (NON-ROCHE/NON-COMPARATOR) [Concomitant]
     Indication: HEPATITIS C
     Route: 048
     Dates: start: 20110610, end: 20120101

REACTIONS (2)
  - THYROID DISORDER [None]
  - WHITE BLOOD CELL COUNT DECREASED [None]
